FAERS Safety Report 19181984 (Version 4)
Quarter: 2021Q2

REPORT INFORMATION
  Report Type: Spontaneous
  Country: US (occurrence: US)
  Receive Date: 20210427
  Receipt Date: 20210629
  Transmission Date: 20210717
  Serious: Yes (Other)
  Sender: FDA-Public Use
  Company Number: US-SA-2021SA133162

PATIENT
  Age: 44 Year
  Sex: Female

DRUGS (45)
  1. SYNTHROID [Concomitant]
     Active Substance: LEVOTHYROXINE SODIUM
  2. EPINEPHRINE. [Concomitant]
     Active Substance: EPINEPHRINE
     Dosage: 5MG
  3. PROTONIX [OMEPRAZOLE] [Concomitant]
     Active Substance: OMEPRAZOLE
  4. NEURONTIN [Concomitant]
     Active Substance: GABAPENTIN
  5. CITRACAL 250+D [Concomitant]
     Dosage: 250 MG?200
  6. XANAX [Concomitant]
     Active Substance: ALPRAZOLAM
  7. BOTOX [Concomitant]
     Active Substance: ONABOTULINUMTOXINA
     Dosage: 100 UNIT VIAL
  8. SYNTHROID [Concomitant]
     Active Substance: LEVOTHYROXINE SODIUM
  9. EPINEPHRINE. [Concomitant]
     Active Substance: EPINEPHRINE
     Dosage: 0.15MG/0.3
  10. SINGULAIR [Concomitant]
     Active Substance: MONTELUKAST SODIUM
  11. TRACLEER [Concomitant]
     Active Substance: BOSENTAN
  12. VITAMIN B12 [Concomitant]
     Active Substance: CYANOCOBALAMIN
  13. RIBOFLAVIN [Concomitant]
     Active Substance: RIBOFLAVIN
  14. ALDACTONE [Concomitant]
     Active Substance: SPIRONOLACTONE
  15. ALLEGRA ALLERGY [Concomitant]
     Active Substance: FEXOFENADINE HYDROCHLORIDE
  16. MAGNESIUM [Concomitant]
     Active Substance: MAGNESIUM
  17. REVATIO [Concomitant]
     Active Substance: SILDENAFIL CITRATE
  18. TRACLEER [Concomitant]
     Active Substance: BOSENTAN
  19. VITAMIN D3 [Concomitant]
     Active Substance: CHOLECALCIFEROL
  20. BOTOX [Concomitant]
     Active Substance: ONABOTULINUMTOXINA
  21. CALCITRIOL. [Concomitant]
     Active Substance: CALCITRIOL
  22. HYDROCHLOROTHIAZIDE. [Concomitant]
     Active Substance: HYDROCHLOROTHIAZIDE
  23. IRON [Concomitant]
     Active Substance: IRON
     Dosage: 325(65) MG TABLET
  24. ALDACTONE [Concomitant]
     Active Substance: SPIRONOLACTONE
  25. VITAMIN D3 [Concomitant]
     Active Substance: CHOLECALCIFEROL
  26. OXYGEN. [Concomitant]
     Active Substance: OXYGEN
  27. XYZAL [Concomitant]
     Active Substance: LEVOCETIRIZINE DIHYDROCHLORIDE
  28. PROTONIX [OMEPRAZOLE] [Concomitant]
     Active Substance: OMEPRAZOLE
  29. XANAX [Concomitant]
     Active Substance: ALPRAZOLAM
  30. AUBAGIO [Suspect]
     Active Substance: TERIFLUNOMIDE
     Indication: MULTIPLE SCLEROSIS
     Dosage: 14 MG, QD
     Route: 048
     Dates: start: 20191210
  31. COUMADIN [Concomitant]
     Active Substance: WARFARIN SODIUM
  32. XYZAL [Concomitant]
     Active Substance: LEVOCETIRIZINE DIHYDROCHLORIDE
  33. CELEXA [Concomitant]
     Active Substance: CITALOPRAM HYDROBROMIDE
  34. TRILEPTAL [Concomitant]
     Active Substance: OXCARBAZEPINE
  35. RIBOFLAVIN [Concomitant]
     Active Substance: RIBOFLAVIN
     Dosage: 50 MG
  36. HYDROCHLOROTHIAZIDE. [Concomitant]
     Active Substance: HYDROCHLOROTHIAZIDE
  37. REMODULIN [Suspect]
     Active Substance: TREPROSTINIL
     Dosage: 10 MG/ML VIAL
  38. COUMADIN [Concomitant]
     Active Substance: WARFARIN SODIUM
  39. SINGULAIR [Concomitant]
     Active Substance: MONTELUKAST SODIUM
  40. ALLEGRA ALLERGY [Concomitant]
     Active Substance: FEXOFENADINE HYDROCHLORIDE
  41. TRILEPTAL [Concomitant]
     Active Substance: OXCARBAZEPINE
  42. CALCITRIOL. [Concomitant]
     Active Substance: CALCITRIOL
  43. REVATIO [Concomitant]
     Active Substance: SILDENAFIL CITRATE
  44. NEURONTIN [Concomitant]
     Active Substance: GABAPENTIN
  45. IRON [Concomitant]
     Active Substance: IRON

REACTIONS (8)
  - Thyroid disorder [Unknown]
  - Diarrhoea [Recovered/Resolved]
  - Seizure [Unknown]
  - Flushing [Recovered/Resolved]
  - Illness [Recovered/Resolved]
  - Anxiety [Unknown]
  - Drug delivery system issue [Unknown]
  - Migraine [Unknown]

NARRATIVE: CASE EVENT DATE: 202104
